FAERS Safety Report 16421380 (Version 1)
Quarter: 2019Q3

REPORT INFORMATION
  Report Type: Spontaneous
  Country: US (occurrence: US)
  Receive Date: 20190611
  Receipt Date: 20190611
  Transmission Date: 20191004
  Serious: Yes (Hospitalization, Disabling)
  Sender: FDA-Public Use
  Company Number: None

PATIENT
  Age: 31 Year
  Sex: Female
  Weight: 72 kg

DRUGS (1)
  1. BOTOX [Suspect]
     Active Substance: ONABOTULINUMTOXINA
     Indication: SKIN COSMETIC PROCEDURE
     Dosage: ?          QUANTITY:20 20 UNITS;?
     Route: 058
     Dates: start: 20190116

REACTIONS (12)
  - Neck pain [None]
  - Vision blurred [None]
  - Lymphadenopathy [None]
  - Decreased appetite [None]
  - Myalgia [None]
  - Tremor [None]
  - Headache [None]
  - Weight decreased [None]
  - Nausea [None]
  - Dizziness [None]
  - Muscle twitching [None]
  - Muscular weakness [None]

NARRATIVE: CASE EVENT DATE: 20190118
